FAERS Safety Report 22318880 (Version 1)
Quarter: 2023Q2

REPORT INFORMATION
  Report Type: Spontaneous
  Country: US (occurrence: US)
  Receive Date: 20230515
  Receipt Date: 20230515
  Transmission Date: 20230721
  Serious: Yes (Other)
  Sender: FDA-Public Use
  Company Number: US-AMGEN-USASP2023079799

PATIENT
  Age: 61 Year
  Sex: Female

DRUGS (5)
  1. PROLIA [Suspect]
     Active Substance: DENOSUMAB
     Indication: Product used for unknown indication
     Dosage: 60 MILLIGRAM
     Route: 065
     Dates: start: 20230214
  2. ZOFRAN [Concomitant]
     Active Substance: ONDANSETRON HYDROCHLORIDE
  3. PREDNISONE [Concomitant]
     Active Substance: PREDNISONE
  4. CALCIUM [Concomitant]
     Active Substance: CALCIUM
  5. VITAMIN D2 [Concomitant]
     Active Substance: ERGOCALCIFEROL

REACTIONS (11)
  - Tachycardia [Unknown]
  - Vertigo [Unknown]
  - Dizziness [Unknown]
  - Headache [Recovering/Resolving]
  - Nausea [Unknown]
  - Asthenia [Unknown]
  - Pain [Unknown]
  - Paraesthesia [Unknown]
  - Muscle spasms [Unknown]
  - Hypertension [Unknown]
  - Emotional disorder [Unknown]

NARRATIVE: CASE EVENT DATE: 20230201
